FAERS Safety Report 18767785 (Version 2)
Quarter: 2021Q1

REPORT INFORMATION
  Report Type: Spontaneous
  Country: US (occurrence: US)
  Receive Date: 20210121
  Receipt Date: 20210318
  Transmission Date: 20210419
  Serious: No
  Sender: FDA-Public Use
  Company Number: US-GLAXOSMITHKLINE-US2021004418

PATIENT
  Age: 73 Year
  Sex: Male
  Weight: 97 kg

DRUGS (1)
  1. BLENREP [Suspect]
     Active Substance: BELANTAMAB MAFODOTIN-BLMF
     Indication: PLASMA CELL MYELOMA
     Dosage: 2.5 MG/KG
     Route: 042
     Dates: start: 20201026

REACTIONS (3)
  - Ocular toxicity [Recovered/Resolved]
  - Off label use [Unknown]
  - Keratopathy [Recovering/Resolving]

NARRATIVE: CASE EVENT DATE: 20201116
